FAERS Safety Report 5034811-9 (Version None)
Quarter: 2006Q2

REPORT INFORMATION
  Report Type: 
  Country: None (occurrence: None)
  Receive Date: 20060627
  Receipt Date: 20060613
  Transmission Date: 20061013
  Serious: Yes (Other)
  Sender: FDA-Public Use
  Company Number: GB-RB-3437-2006

PATIENT
  Age: 39 Year
  Sex: Male

DRUGS (5)
  1. BUPRENORPHINE HCL [Suspect]
     Indication: DRUG USE FOR UNKNOWN INDICATION
     Route: 048
     Dates: start: 20060201, end: 20060326
  2. BUPRENORPHINE HCL [Suspect]
     Route: 048
     Dates: start: 20060327
  3. DIAZEPAM [Concomitant]
     Indication: DRUG DEPENDENCE
     Route: 065
  4. MEDICINALPRODUCT NOT SPECIFIED BY SENDER [Concomitant]
     Indication: ASTHMA
     Dosage: DOSAGE UNKNOWN
     Route: 055
  5. FRUSEMIDE [Concomitant]
     Indication: POLYURIA
     Route: 065
     Dates: start: 20060525

REACTIONS (5)
  - DRUG INEFFECTIVE [None]
  - DRUG WITHDRAWAL SYNDROME [None]
  - DYSGEUSIA [None]
  - HYPERHIDROSIS [None]
  - MOUTH ULCERATION [None]
